FAERS Safety Report 9700893 (Version 2)
Quarter: 2013Q4

REPORT INFORMATION
  Report Type: Report from Study
  Country: US (occurrence: US)
  Receive Date: 20131121
  Receipt Date: 20131216
  Transmission Date: 20140711
  Serious: Yes (Hospitalization)
  Sender: FDA-Public Use
  Company Number: PHEH2013US024350

PATIENT
  Age: 61 Year
  Sex: Female

DRUGS (4)
  1. EXELON PATCH [Suspect]
     Indication: DEMENTIA
     Dosage: UNK UKN, UNK
     Route: 062
     Dates: start: 20130115
  2. ARICEPT [Suspect]
     Indication: DEMENTIA
     Dosage: UNK UKN, UNK
     Route: 048
  3. NAMENDA [Suspect]
     Indication: DEMENTIA
     Dosage: UNK UKN, UNK
     Route: 048
  4. DEPAKOTE [Suspect]
     Indication: DEMENTIA
     Dosage: UNK UKN, UNK
     Route: 048

REACTIONS (2)
  - Wound infection [Not Recovered/Not Resolved]
  - Convulsion [Not Recovered/Not Resolved]
